FAERS Safety Report 23331652 (Version 1)
Quarter: 2023Q4

REPORT INFORMATION
  Report Type: Spontaneous
  Country: US (occurrence: None)
  Receive Date: 20231222
  Receipt Date: 20231222
  Transmission Date: 20240110
  Serious: Yes (Other)
  Sender: FDA-Public Use
  Company Number: None

PATIENT
  Age: 36 Year
  Sex: Female
  Weight: 106.2 kg

DRUGS (4)
  1. INFED [Suspect]
     Active Substance: IRON DEXTRAN
     Indication: Iron deficiency anaemia
     Dosage: OTHER FREQUENCY : ONCE;?
     Route: 042
     Dates: start: 20231213, end: 20231213
  2. Ferrous Sulfate ER 142 mg PO daily [Concomitant]
  3. Venlafaxine 37.5 mg PO daily [Concomitant]
  4. Venlafaxine 75 mg PO daily [Concomitant]

REACTIONS (3)
  - Throat irritation [None]
  - Nasal pruritus [None]
  - Infusion related reaction [None]

NARRATIVE: CASE EVENT DATE: 20231213
